FAERS Safety Report 4665247-8 (Version None)
Quarter: 2005Q2

REPORT INFORMATION
  Report Type: 
  Country: None (occurrence: None)
  Receive Date: 20050517
  Receipt Date: 20050427
  Transmission Date: 20051028
  Serious: Yes (Other)
  Sender: FDA-Public Use
  Company Number: US_0505117202

PATIENT
  Sex: Female

DRUGS (3)
  1. EVISTA [Suspect]
  2. MIACALCIN [Concomitant]
  3. ACTONEL [Concomitant]

REACTIONS (3)
  - DRUG INTOLERANCE [None]
  - MULTIPLE FRACTURES [None]
  - PATHOLOGICAL FRACTURE [None]
